FAERS Safety Report 11682193 (Version 2)
Quarter: 2015Q4

REPORT INFORMATION
  Report Type: Report from Study
  Country: US (occurrence: US)
  Receive Date: 20151029
  Receipt Date: 20151117
  Transmission Date: 20160304
  Serious: Yes (Hospitalization)
  Sender: FDA-Public Use
  Company Number: US-BIOGENIDEC-2015BI144687

PATIENT
  Sex: Female

DRUGS (10)
  1. MYCOSTATIN [Concomitant]
     Active Substance: NYSTATIN
  2. TECFIDERA [Suspect]
     Active Substance: DIMETHYL FUMARATE
     Indication: MULTIPLE SCLEROSIS
     Route: 048
     Dates: start: 201507
  3. NEXIUM [Concomitant]
     Active Substance: ESOMEPRAZOLE MAGNESIUM
  4. MORPHINE SULFATE. [Concomitant]
     Active Substance: MORPHINE SULFATE
  5. LYRICA [Concomitant]
     Active Substance: PREGABALIN
  6. SOMA [Concomitant]
     Active Substance: CARISOPRODOL
  7. TECFIDERA [Suspect]
     Active Substance: DIMETHYL FUMARATE
     Indication: MULTIPLE SCLEROSIS
     Route: 048
  8. FENTANYL. [Concomitant]
     Active Substance: FENTANYL
  9. AMPYRA [Concomitant]
     Active Substance: DALFAMPRIDINE
  10. TIZANDINE HCL [Concomitant]

REACTIONS (2)
  - Respiratory arrest [Unknown]
  - Cardiac arrest [Unknown]
